FAERS Safety Report 9366328 (Version 2)
Quarter: 2013Q3

REPORT INFORMATION
  Report Type: Spontaneous
  Country: US (occurrence: US)
  Receive Date: 20130625
  Receipt Date: 20130920
  Transmission Date: 20140515
  Serious: Yes (Other)
  Sender: FDA-Public Use
  Company Number: US-JNJFOC-20130610730

PATIENT
  Age: 60 Year
  Sex: Female

DRUGS (5)
  1. XARELTO [Suspect]
     Indication: HYPERCOAGULATION
     Route: 048
  2. XARELTO [Suspect]
     Indication: HIP SURGERY
     Route: 048
  3. XARELTO [Suspect]
     Indication: SYSTEMIC LUPUS ERYTHEMATOSUS
     Route: 048
  4. ASPIRIN [Suspect]
     Indication: PRODUCT USED FOR UNKNOWN INDICATION
     Route: 065
  5. CELEBREX [Suspect]
     Indication: PRODUCT USED FOR UNKNOWN INDICATION
     Route: 065

REACTIONS (3)
  - Catheter site haemorrhage [Recovered/Resolved]
  - Hip arthroplasty [Unknown]
  - Off label use [Unknown]
